FAERS Safety Report 15853469 (Version 2)
Quarter: 2019Q2

REPORT INFORMATION
  Report Type: Spontaneous
  Country: US (occurrence: US)
  Receive Date: 20190122
  Receipt Date: 20190401
  Transmission Date: 20190711
  Serious: No
  Sender: FDA-Public Use
  Company Number: US-SA-2019SA014485

PATIENT
  Sex: Female

DRUGS (2)
  1. CEFUROXIME AXETIL. [Suspect]
     Active Substance: CEFUROXIME AXETIL
     Indication: OSTEOMYELITIS
     Dosage: 500 MG, BID
  2. RIFADIN [Suspect]
     Active Substance: RIFAMPIN
     Indication: OSTEOMYELITIS
     Dosage: 300 MG, BID

REACTIONS (3)
  - Hair growth abnormal [Unknown]
  - Blood urea decreased [Unknown]
  - Red blood cell sedimentation rate decreased [Unknown]
